FAERS Safety Report 4839131-0 (Version None)
Quarter: 2005Q4

REPORT INFORMATION
  Report Type: 
  Country: None (occurrence: None)
  Receive Date: 20051128
  Receipt Date: 20051128
  Transmission Date: 20060501
  Serious: Yes (Hospitalization)
  Sender: FDA-Public Use
  Company Number: None

PATIENT
  Sex: Female
  Weight: 64.8644 kg

DRUGS (1)
  1. GEMZAR [Suspect]
     Indication: CERVIX CARCINOMA
     Dosage: 574 MG/Q WEEK X 6, IV
     Route: 042
     Dates: start: 20051013, end: 20051117

REACTIONS (3)
  - DIARRHOEA HAEMORRHAGIC [None]
  - NAUSEA [None]
  - VOMITING [None]
